FAERS Safety Report 25316832 (Version 1)
Quarter: 2025Q2

REPORT INFORMATION
  Report Type: Spontaneous
  Country: IT (occurrence: IT)
  Receive Date: 20250515
  Receipt Date: 20250515
  Transmission Date: 20250716
  Serious: Yes (Death, Hospitalization)
  Sender: MERCK SHARP & DOHME LLC
  Company Number: None

PATIENT
  Age: 57 Year
  Sex: Male

DRUGS (1)
  1. KEYTRUDA [Suspect]
     Active Substance: PEMBROLIZUMAB
     Indication: Lung adenocarcinoma stage IV
     Route: 042
     Dates: start: 20250313, end: 20250313

REACTIONS (7)
  - Pulmonary embolism [Fatal]
  - Intestinal perforation [Fatal]
  - Nausea [Not Recovered/Not Resolved]
  - Acute respiratory failure [Fatal]
  - Cerebral venous thrombosis [Fatal]
  - Non-small cell lung cancer [Fatal]
  - Vascular compression [Fatal]

NARRATIVE: CASE EVENT DATE: 20250314
